FAERS Safety Report 9393936 (Version 4)
Quarter: 2013Q3

REPORT INFORMATION
  Report Type: Spontaneous
  Country: DE (occurrence: None)
  Receive Date: 20130705
  Receipt Date: 20130805
  Transmission Date: 20140515
  Serious: Yes (Other)
  Sender: FDA-Public Use
  Company Number: 7221422

PATIENT
  Age: 70 Year
  Sex: Female

DRUGS (1)
  1. EUTHYROX [Suspect]
     Indication: PRODUCT USED FOR UNKNOWN INDICATION
     Dosage: 1.5 DF, 1 IN 1 D
     Route: 048

REACTIONS (5)
  - Loss of consciousness [None]
  - Feeling abnormal [None]
  - Economic problem [None]
  - Malaise [None]
  - Vertigo [None]
